FAERS Safety Report 15471291 (Version 1)
Quarter: 2018Q4

REPORT INFORMATION
  Report Type: Spontaneous
  Country: US (occurrence: US)
  Receive Date: 20181006
  Receipt Date: 20181006
  Transmission Date: 20190205
  Serious: No
  Sender: FDA-Public Use
  Company Number: US-JNJFOC-20180929002

PATIENT
  Age: 29 Year
  Sex: Male
  Weight: 79.38 kg

DRUGS (1)
  1. REMICADE [Suspect]
     Active Substance: INFLIXIMAB
     Indication: CROHN^S DISEASE
     Route: 042
     Dates: start: 20140613

REACTIONS (3)
  - Inappropriate schedule of product administration [Unknown]
  - Off label use [Unknown]
  - Product dose omission [Unknown]

NARRATIVE: CASE EVENT DATE: 20140613
